FAERS Safety Report 8009126-7 (Version None)
Quarter: 2011Q4

REPORT INFORMATION
  Report Type: 
  Country: None (occurrence: None)
  Receive Date: 20111227
  Receipt Date: 20111215
  Transmission Date: 20120403
  Serious: Yes (Other)
  Sender: FDA-Public Use
  Company Number: US-ASTRAZENECA-2011SE48863

PATIENT
  Age: 51 Year
  Sex: Female

DRUGS (1)
  1. SEROQUEL [Suspect]
     Route: 048

REACTIONS (7)
  - CRANIOCEREBRAL INJURY [None]
  - DRUG INTOLERANCE [None]
  - FALL [None]
  - DEPRESSED MOOD [None]
  - ASTHENIA [None]
  - SUICIDAL IDEATION [None]
  - HEAD INJURY [None]
